FAERS Safety Report 7010924-7 (Version None)
Quarter: 2010Q3

REPORT INFORMATION
  Report Type: 
  Country: None (occurrence: None)
  Receive Date: 20100923
  Receipt Date: 20100923
  Transmission Date: 20110219
  Serious: Yes (Disabling)
  Sender: FDA-Public Use
  Company Number: None

PATIENT
  Age: 55 Year
  Sex: Female
  Weight: 49.8957 kg

DRUGS (4)
  1. AMPYRA [Suspect]
     Indication: MULTIPLE SCLEROSIS
     Dosage: 10MG EXTENDED RELEASE TABLETS 2X/DAY SWALLOW WHOLE ~ 12 HRS APART NO CHEWING
     Dates: start: 20100521, end: 20100722
  2. AMPYRA [Suspect]
     Indication: SECONDARY PROGRESSIVE MULTIPLE SCLEROSIS
     Dosage: 10MG EXTENDED RELEASE TABLETS 2X/DAY SWALLOW WHOLE ~ 12 HRS APART NO CHEWING
     Dates: start: 20100521, end: 20100722
  3. AMPYRA [Suspect]
     Indication: MULTIPLE SCLEROSIS
     Dosage: 10MG EXTENDED RELEASE TABLETS 2X/DAY SWALLOW WHOLE ~ 12 HRS APART NO CHEWING
     Dates: start: 20100528, end: 20100722
  4. AMPYRA [Suspect]
     Indication: SECONDARY PROGRESSIVE MULTIPLE SCLEROSIS
     Dosage: 10MG EXTENDED RELEASE TABLETS 2X/DAY SWALLOW WHOLE ~ 12 HRS APART NO CHEWING
     Dates: start: 20100528, end: 20100722

REACTIONS (2)
  - COGNITIVE DISORDER [None]
  - MULTIPLE SCLEROSIS RELAPSE [None]
